FAERS Safety Report 19720155 (Version 2)
Quarter: 2021Q3

REPORT INFORMATION
  Report Type: Spontaneous
  Country: CA (occurrence: CA)
  Receive Date: 20210818
  Receipt Date: 20210830
  Transmission Date: 20211014
  Serious: Yes (Other)
  Sender: FDA-Public Use
  Company Number: CA-009507513-2108CAN003758

PATIENT
  Age: 3 Year
  Sex: Female

DRUGS (11)
  1. VORICONAZOLE. [Suspect]
     Active Substance: VORICONAZOLE
     Indication: ANTIFUNGAL PROPHYLAXIS
     Dosage: DOSAGE FORM: NOT SPECIFIED
     Route: 065
  2. FLUCONAZOL [Concomitant]
     Active Substance: FLUCONAZOLE
     Dosage: DOSAGE FORM: NOT SPECIFIED
  3. CANCIDAS [Suspect]
     Active Substance: CASPOFUNGIN ACETATE
     Indication: ANTIFUNGAL PROPHYLAXIS
     Route: 065
  4. VANCOMYCIN [Suspect]
     Active Substance: VANCOMYCIN
     Indication: ANTIFUNGAL PROPHYLAXIS
     Dosage: DOSAGE FORM: NOT SPECIFIED
     Route: 065
  5. AMPHOTERICIN?B [Suspect]
     Active Substance: AMPHOTERICIN B
     Indication: ANTIFUNGAL PROPHYLAXIS
     Dosage: DOSAGE FORM NOT SPECIFIED
     Route: 065
  6. ETOPOSIDE. [Suspect]
     Active Substance: ETOPOSIDE
     Indication: ACUTE MYELOID LEUKAEMIA
     Dosage: DOSAGE FORM: NOT SPECIFIED
     Route: 065
  7. PIPERACILLIN AND TAZOBACTAM [Suspect]
     Active Substance: PIPERACILLIN SODIUM\TAZOBACTAM SODIUM
     Indication: ANTIFUNGAL PROPHYLAXIS
     Dosage: DOSAGE FORM: NOT SPECIFIED
     Route: 065
  8. CYTARABINE INJECTION [Suspect]
     Active Substance: CYTARABINE
     Indication: ACUTE MYELOID LEUKAEMIA
     Dosage: DOSAGE FORM: NOT SPECIFIED
     Route: 065
  9. DAUNOMYCIN [DAUNORUBICIN] [Suspect]
     Active Substance: DAUNORUBICIN
     Indication: ACUTE MYELOID LEUKAEMIA
     Route: 065
  10. MEROPENEM. [Suspect]
     Active Substance: MEROPENEM
     Indication: PRODUCT USED FOR UNKNOWN INDICATION
     Route: 065
  11. AMPHOTERICIN?B [Suspect]
     Active Substance: AMPHOTERICIN B
     Dosage: DOSAGE FORM NOT SPECIFIED
     Route: 065

REACTIONS (7)
  - Abscess [Unknown]
  - Condition aggravated [Unknown]
  - Drug ineffective [Unknown]
  - Pain in extremity [Unknown]
  - Candida infection [Unknown]
  - Pathological fracture [Unknown]
  - Renal abscess [Unknown]
